FAERS Safety Report 9857138 (Version 1)
Quarter: 2014Q1

REPORT INFORMATION
  Report Type: Spontaneous
  Country: NL (occurrence: None)
  Receive Date: 20140128
  Receipt Date: 20140128
  Transmission Date: 20141002
  Serious: Yes (Other)
  Sender: FDA-Public Use
  Company Number: AUR-APL-2014-00642

PATIENT
  Age: 55 Year
  Sex: Female
  Weight: 75 kg

DRUGS (6)
  1. SERTRALINE (SERTRALINE) [Suspect]
     Indication: DEPRESSION
  2. OLANZAPINE (OLANZAPINE) [Suspect]
     Indication: SLEEP DISORDER
  3. OMEPRAZOLE (OMEPRAZOLE) [Concomitant]
  4. ATORVASTATIN (ATORVASTATIN) [Concomitant]
  5. AMLODIPINE (AMLODIPINE) [Concomitant]
  6. ENALAPRIL (ENALAPRIL) [Concomitant]

REACTIONS (1)
  - Hepatitis [None]
